FAERS Safety Report 6861478-7 (Version None)
Quarter: 2010Q3

REPORT INFORMATION
  Report Type: 
  Country: None (occurrence: None)
  Receive Date: 20100715
  Receipt Date: 20100630
  Transmission Date: 20110219
  Serious: Yes (Hospitalization)
  Sender: FDA-Public Use
  Company Number: 2010002763

PATIENT
  Age: 65 Year
  Sex: Male
  Weight: 50.5 kg

DRUGS (10)
  1. ERLOTINIB HYDROCHLORIDE [Suspect]
     Indication: LUNG ADENOCARCINOMA
     Dosage: 150 MG, QD, ORAL
     Route: 048
     Dates: start: 20090107, end: 20100519
  2. TICLOPIDINE HCL [Suspect]
     Indication: ANGINA PECTORIS
     Dosage: 200 MG, QD, ORAL
     Route: 048
  3. ASPIRIN [Suspect]
     Indication: ANGINA PECTORIS
     Dosage: 200 MG, QD, ORAL
     Route: 048
  4. SIGMART (NICORANDIL) [Concomitant]
  5. BASEN (VOGLIBOSE) [Concomitant]
  6. PANTOSIN (PANTETHINE) [Concomitant]
  7. LOXONIN (LOXOPROFEN SODIUM) [Concomitant]
  8. SELBEX (TEPRENONE) [Concomitant]
  9. OXINORM (ORGOTEIN) [Concomitant]
  10. FENTANYL-100 [Concomitant]

REACTIONS (3)
  - ANAEMIA [None]
  - EPISTAXIS [None]
  - PLATELET COUNT DECREASED [None]
